FAERS Safety Report 10009390 (Version 1)
Quarter: 2014Q1

REPORT INFORMATION
  Report Type: Spontaneous
  Country: US (occurrence: US)
  Receive Date: 20140313
  Receipt Date: 20140313
  Transmission Date: 20141002
  Serious: No
  Sender: FDA-Public Use
  Company Number: US-INCYTE CORPORATION-2012IN001523

PATIENT
  Age: 86 Year
  Sex: Female

DRUGS (1)
  1. JAKAFI [Suspect]
     Dosage: UNK

REACTIONS (1)
  - Nocturia [Not Recovered/Not Resolved]
